FAERS Safety Report 5455619-6 (Version None)
Quarter: 2007Q3

REPORT INFORMATION
  Report Type: 
  Country: None (occurrence: None)
  Receive Date: 20070914
  Receipt Date: 20070829
  Transmission Date: 20080115
  Serious: Yes (Other)
  Sender: FDA-Public Use
  Company Number: 2007SP017655

PATIENT
  Age: 73 Year
  Sex: Male

DRUGS (6)
  1. CLARITIN-D 24 HOUR [Suspect]
     Indication: NASAL CONGESTION
     Dosage: PRN; PO
     Route: 048
     Dates: start: 20070501, end: 20070829
  2. CLARITIN-D 24 HOUR [Suspect]
     Indication: SNEEZING
     Dosage: PRN; PO
     Route: 048
     Dates: start: 20070501, end: 20070829
  3. HYDROCHLOROTHIAZIDE [Concomitant]
  4. LISINOPRIL [Concomitant]
  5. SIMVASTATIN [Concomitant]
  6. OMEPRAZOLE [Concomitant]

REACTIONS (2)
  - OLIGURIA [None]
  - URINE FLOW DECREASED [None]
